FAERS Safety Report 7190478-5 (Version None)
Quarter: 2010Q4

REPORT INFORMATION
  Report Type: 
  Country: None (occurrence: None)
  Receive Date: 20101223
  Receipt Date: 20101217
  Transmission Date: 20110411
  Serious: Yes (Hospitalization)
  Sender: FDA-Public Use
  Company Number: US-B.I. PHARMACEUTICALS,INC./RIDGEFIELD-2010-BP-14726BP

PATIENT
  Sex: Female

DRUGS (2)
  1. PRADAXA [Suspect]
     Indication: CARDIAC DISORDER
     Dosage: 300 MG
     Route: 048
     Dates: start: 20101122
  2. DILTIAZEM [Concomitant]
     Indication: CARDIAC DISORDER

REACTIONS (4)
  - DIZZINESS [None]
  - HAEMORRHOIDAL HAEMORRHAGE [None]
  - HEART RATE INCREASED [None]
  - SOMNOLENCE [None]
